FAERS Safety Report 19118199 (Version 1)
Quarter: 2021Q2

REPORT INFORMATION
  Report Type: Spontaneous
  Country: US (occurrence: US)
  Receive Date: 20210409
  Receipt Date: 20210409
  Transmission Date: 20210717
  Serious: No
  Sender: FDA-Public Use
  Company Number: US-SUNOVION-2021SUN001144

PATIENT
  Sex: Female

DRUGS (2)
  1. SEROQUEL [Suspect]
     Active Substance: QUETIAPINE FUMARATE
     Route: 065
  2. LATUDA [Suspect]
     Active Substance: LURASIDONE HYDROCHLORIDE
     Indication: BIPOLAR DISORDER
     Dosage: UNK, HS
     Route: 048

REACTIONS (6)
  - Weight increased [Unknown]
  - Blood pressure increased [Unknown]
  - Blood glucose increased [Unknown]
  - Dizziness [Unknown]
  - Blood cholesterol increased [Unknown]
  - Poor quality sleep [Unknown]
